FAERS Safety Report 17999297 (Version 6)
Quarter: 2023Q1

REPORT INFORMATION
  Report Type: Report from Study
  Country: US (occurrence: US)
  Receive Date: 20200709
  Receipt Date: 20230227
  Transmission Date: 20230417
  Serious: Yes (Death, Life-Threatening, Hospitalization, Other)
  Sender: FDA-Public Use
  Company Number: US-AMGEN-USACT2020109472

PATIENT
  Age: 83 Year
  Sex: Female
  Weight: 53.515 kg

DRUGS (16)
  1. CARFILZOMIB [Suspect]
     Active Substance: CARFILZOMIB
     Indication: Plasma cell myeloma
     Dosage: 36 MILLIGRAM/SQ. METER, WEEKLY WITH 3 WEEKS ON AND 1 WEEK OFF
     Route: 042
     Dates: start: 20200408, end: 20200701
  2. DEXAMETHASONE [Suspect]
     Active Substance: DEXAMETHASONE
     Indication: Plasma cell myeloma
     Dosage: 20 MILLIGRAM, 1 IN 1 WK
     Route: 048
     Dates: start: 20200408, end: 20200701
  3. VENETOCLAX [Suspect]
     Active Substance: VENETOCLAX
     Indication: Plasma cell myeloma
     Dosage: UNK
     Route: 048
  4. VALTREX [Concomitant]
     Active Substance: VALACYCLOVIR HYDROCHLORIDE
     Indication: Antibiotic prophylaxis
     Dosage: 500 MILLIGRAM, QID
     Route: 048
     Dates: start: 20200320
  5. POTASSIUM [Concomitant]
     Active Substance: POTASSIUM
     Indication: Prophylaxis
     Dosage: 10 MILLIEQUIVALENT, QID
     Route: 048
     Dates: start: 2008
  6. ASPIRIN [Concomitant]
     Active Substance: ASPIRIN
     Indication: Prophylaxis
     Dosage: 500 MILLIGRAM, QD
     Route: 048
     Dates: start: 20191113
  7. CALCIUM W/VITAMIN D [CALCIUM;COLECALCIFEROL] [Concomitant]
     Dosage: 500 MILLIGRAM, 2 IN 1 D
     Route: 048
     Dates: start: 20190925
  8. DOCUSATE [Concomitant]
     Active Substance: DOCUSATE
     Indication: Constipation
     Dosage: 100 MILLIGRAM, 2 IN 1 D
     Route: 048
     Dates: start: 20190925
  9. FAMOTIDINE [Concomitant]
     Active Substance: FAMOTIDINE
     Indication: Gastrooesophageal reflux disease
     Dosage: 20 MILLIGRAM, 1 IN 1 D
     Route: 048
     Dates: start: 20190925
  10. OMEPRAZOLE [Concomitant]
     Active Substance: OMEPRAZOLE
     Indication: Gastrooesophageal reflux disease
     Dosage: 40 MILLIGRAM, 1 IN 1 D
     Route: 048
     Dates: start: 20190925
  11. POLYETHYLENE GLYCOL 3350 [Concomitant]
     Active Substance: POLYETHYLENE GLYCOL 3350
     Indication: Constipation
     Dosage: 17 GRAM, 1 IN 1 D
     Route: 048
     Dates: start: 20190925
  12. ZANTAC [Concomitant]
     Active Substance: RANITIDINE HYDROCHLORIDE
     Indication: Gastrooesophageal reflux disease
     Dosage: 300 MILLIGRAM, 1 IN 1 D
     Route: 048
     Dates: start: 20190925
  13. ZOFRAN [Concomitant]
     Active Substance: ONDANSETRON HYDROCHLORIDE
     Indication: Nausea
     Dosage: 300 MILLIGRAM, 1 IN 1 D
     Route: 042
     Dates: start: 20190925
  14. ZOFRAN [Concomitant]
     Active Substance: ONDANSETRON HYDROCHLORIDE
     Dosage: 8 MILLIGRAM, 1 IN 1 D
     Route: 042
     Dates: start: 20200408
  15. SODIUM CHLORIDE [Concomitant]
     Active Substance: SODIUM CHLORIDE
     Dosage: 250 MILLILITER
     Route: 042
     Dates: start: 20200408
  16. OXYGEN [Concomitant]
     Active Substance: OXYGEN
     Indication: Dyspnoea
     Dosage: UNK LIT, AS REQUIRED
     Route: 045
     Dates: start: 20200415, end: 20200701

REACTIONS (2)
  - Ventricular fibrillation [Fatal]
  - Ventricular fibrillation [Recovered/Resolved]

NARRATIVE: CASE EVENT DATE: 20200701
